FAERS Safety Report 8619783-X (Version None)
Quarter: 2012Q3

REPORT INFORMATION
  Report Type: 
  Country: None (occurrence: None)
  Receive Date: 20120824
  Receipt Date: 20120813
  Transmission Date: 20120928
  Serious: Yes (Hospitalization)
  Sender: FDA-Public Use
  Company Number: DE-PERRIGO-12DE007021

PATIENT
  Age: 33 Year
  Sex: Female

DRUGS (8)
  1. NANDROLONE [Suspect]
     Indication: DRUG ABUSE
     Dosage: UNK
     Route: 065
  2. CLENBUTEROL [Suspect]
     Indication: DRUG ABUSE
     Dosage: UNK
     Route: 065
  3. COCAINE [Suspect]
     Indication: DRUG ABUSE
     Dosage: UNK
     Route: 065
  4. STANOZOLOL [Suspect]
     Indication: DRUG ABUSE
     Dosage: UNK
     Route: 065
  5. AMPHETAMINES [Suspect]
     Indication: DRUG ABUSE
     Dosage: UNK
     Route: 065
  6. ANABOLIC ANDROGEN STEROID HORMONE [Suspect]
     Indication: DRUG ABUSE
     Dosage: UNK
     Route: 065
  7. TESTOSTERONE ENANTHATE [Suspect]
     Indication: DRUG ABUSE
     Dosage: UNK
     Route: 065
  8. METHANDROSTENOLONE [Suspect]
     Indication: DRUG ABUSE
     Dosage: UNK
     Route: 065

REACTIONS (6)
  - HYPERTHERMIA [None]
  - BLOOD CREATINE PHOSPHOKINASE INCREASED [None]
  - RHABDOMYOLYSIS [None]
  - MULTI-ORGAN FAILURE [None]
  - PROCALCITONIN INCREASED [None]
  - RENAL FAILURE ACUTE [None]
